FAERS Safety Report 14181020 (Version 1)
Quarter: 2017Q4

REPORT INFORMATION
  Report Type: Spontaneous
  Country: US (occurrence: None)
  Receive Date: 20171110
  Receipt Date: 20171110
  Transmission Date: 20180321
  Serious: No
  Sender: FDA-Public Use
  Company Number: None

PATIENT
  Age: 56 Year
  Sex: Female

DRUGS (1)
  1. DULOXETINE DR, 60 MG [Suspect]
     Active Substance: DULOXETINE
     Route: 048
     Dates: start: 20170830, end: 20171022

REACTIONS (2)
  - Drug hypersensitivity [None]
  - Product substitution issue [None]

NARRATIVE: CASE EVENT DATE: 20171110
